FAERS Safety Report 17087271 (Version 1)
Quarter: 2019Q4

REPORT INFORMATION
  Report Type: Report from Study
  Country: US (occurrence: US)
  Receive Date: 20191128
  Receipt Date: 20191128
  Transmission Date: 20200122
  Serious: Yes (Death, Other)
  Sender: FDA-Public Use
  Company Number: US-GILEAD-2019-0439896

PATIENT
  Age: 51 Year
  Sex: Male

DRUGS (10)
  1. MIDODRINE [Concomitant]
     Active Substance: MIDODRINE
  2. AMBRISENTAN [Suspect]
     Active Substance: AMBRISENTAN
     Indication: PULMONARY ARTERIAL HYPERTENSION
     Dosage: 10 MG, QD
     Route: 065
     Dates: start: 20180824, end: 20191123
  3. SPIRONOLACTON [Concomitant]
     Active Substance: SPIRONOLACTONE
  4. BUMETANIDE. [Concomitant]
     Active Substance: BUMETANIDE
  5. FUROSEMIDE. [Concomitant]
     Active Substance: FUROSEMIDE
  6. HYDROXYZINE [Concomitant]
     Active Substance: HYDROXYZINE HYDROCHLORIDE
  7. OMEPRAZOLE. [Concomitant]
     Active Substance: OMEPRAZOLE
  8. CARVEDILOL. [Concomitant]
     Active Substance: CARVEDILOL
  9. CEFUROXIME. [Concomitant]
     Active Substance: CEFUROXIME
  10. XIFAXAN [Concomitant]
     Active Substance: RIFAXIMIN

REACTIONS (1)
  - Death [Fatal]

NARRATIVE: CASE EVENT DATE: 20191123
